FAERS Safety Report 23739703 (Version 1)
Quarter: 2024Q2

REPORT INFORMATION
  Report Type: Spontaneous
  Country: FR (occurrence: FR)
  Receive Date: 20240414
  Receipt Date: 20240414
  Transmission Date: 20240716
  Serious: Yes (Hospitalization, Other)
  Sender: FDA-Public Use
  Company Number: FR-AFSSAPS-PB2024000331

PATIENT
  Age: 17 Year
  Sex: Female
  Weight: 54.5 kg

DRUGS (2)
  1. CITALOPRAM [Suspect]
     Active Substance: CITALOPRAM\CITALOPRAM HYDROBROMIDE
     Indication: Product used for unknown indication
     Dosage: 15 DOSAGE FORM (15 CP)
     Route: 048
     Dates: start: 20240319
  2. SERTRALINE [Suspect]
     Active Substance: SERTRALINE HYDROCHLORIDE
     Indication: Product used for unknown indication
     Dosage: 60 DOSAGE FORM (60 CP DE 50 MG)
     Route: 048
     Dates: start: 20240319

REACTIONS (5)
  - Electrocardiogram QT prolonged [Recovering/Resolving]
  - Poisoning deliberate [Unknown]
  - Muscle rigidity [Recovering/Resolving]
  - Myoclonus [Recovering/Resolving]
  - Hyperreflexia [Recovering/Resolving]

NARRATIVE: CASE EVENT DATE: 20240319
